FAERS Safety Report 7327030-4 (Version None)
Quarter: 2011Q1

REPORT INFORMATION
  Report Type: 
  Country: None (occurrence: None)
  Receive Date: 20110222
  Receipt Date: 20110210
  Transmission Date: 20110831
  Serious: Yes (Hospitalization, Other)
  Sender: FDA-Public Use
  Company Number: 2010SP057916

PATIENT
  Age: 26 Year
  Sex: Female
  Weight: 67.1324 kg

DRUGS (1)
  1. NUVARING [Suspect]
     Indication: CONTRACEPTION
     Dates: start: 20080901, end: 20081101

REACTIONS (5)
  - PULMONARY EMBOLISM [None]
  - OVARIAN CYST [None]
  - THROMBOSIS [None]
  - MIGRAINE [None]
  - CHEST PAIN [None]
